FAERS Safety Report 8829407 (Version 2)
Quarter: 2015Q2

REPORT INFORMATION
  Report Type: Report from Study
  Country: US (occurrence: US)
  Receive Date: 20121008
  Receipt Date: 20150408
  Transmission Date: 20150821
  Serious: Yes (Death, Hospitalization)
  Sender: FDA-Public Use
  Company Number: US-ROCHE-1131409

PATIENT
  Sex: Male

DRUGS (24)
  1. DACARBAZINE. [Concomitant]
     Active Substance: DACARBAZINE
  2. NIFEREX (UNITED STATES) [Concomitant]
     Route: 065
  3. POTASSIUM CHLORIDE. [Concomitant]
     Active Substance: POTASSIUM CHLORIDE
     Route: 065
  4. PROCARBAZINE [Concomitant]
     Active Substance: PROCARBAZINE
  5. PREVACID [Concomitant]
     Active Substance: LANSOPRAZOLE
     Route: 065
  6. NAPROSYN [Concomitant]
     Active Substance: NAPROXEN
     Route: 065
  7. RITUXAN [Suspect]
     Active Substance: RITUXIMAB
     Indication: HODGKIN^S DISEASE LYMPHOCYTE DEPLETION TYPE REFRACTORY
     Route: 042
     Dates: start: 20011213
  8. VINCRISTIN [Concomitant]
     Active Substance: VINCRISTINE
  9. PENICILLINS [Concomitant]
     Active Substance: PENICILLIN
  10. ADRIAMYCIN [Concomitant]
     Active Substance: DOXORUBICIN HYDROCHLORIDE
  11. MECHLORETHAMINE [Concomitant]
     Active Substance: MECHLORETHAMINE
  12. PREDNISONE. [Concomitant]
     Active Substance: PREDNISONE
  13. BETAPACE [Concomitant]
     Active Substance: SOTALOL HYDROCHLORIDE
     Route: 065
  14. PROCRIT [Concomitant]
     Active Substance: ERYTHROPOIETIN
     Route: 065
  15. BLEOMYCIN [Concomitant]
     Active Substance: BLEOMYCIN SULFATE
  16. PROCRIT [Concomitant]
     Active Substance: ERYTHROPOIETIN
     Route: 065
  17. TESSALON [Concomitant]
     Active Substance: BENZONATATE
  18. ONCOVIN [Concomitant]
     Active Substance: VINCRISTINE SULFATE
  19. COUMADIN [Concomitant]
     Active Substance: WARFARIN SODIUM
     Route: 065
  20. MUSTARGEN [Concomitant]
     Active Substance: MECHLORETHAMINE HYDROCHLORIDE
  21. COMPAZINE [Concomitant]
     Active Substance: PROCHLORPERAZINE MALEATE
  22. VINBLASTINE [Concomitant]
     Active Substance: VINBLASTINE
  23. URECHOLINE [Concomitant]
     Active Substance: BETHANECHOL CHLORIDE
     Route: 065
  24. LASIX [Concomitant]
     Active Substance: FUROSEMIDE
     Dosage: P.R.N
     Route: 065

REACTIONS (15)
  - Constipation [Unknown]
  - Pyrexia [Unknown]
  - Confusional state [Unknown]
  - Asthenia [Unknown]
  - Dyspnoea [Unknown]
  - Neuropathy peripheral [Unknown]
  - Dehydration [Unknown]
  - Myalgia [Unknown]
  - Lethargy [Unknown]
  - Cough [Unknown]
  - Oedema peripheral [Unknown]
  - Decreased appetite [Unknown]
  - Death [Fatal]
  - Abasia [Unknown]
  - Weight decreased [Unknown]
